FAERS Safety Report 12638989 (Version 1)
Quarter: 2016Q3

REPORT INFORMATION
  Report Type: Spontaneous
  Country: AR (occurrence: AR)
  Receive Date: 20160809
  Receipt Date: 20160809
  Transmission Date: 20161109
  Serious: Yes (Other)
  Sender: FDA-Public Use
  Company Number: AR-AMGEN-ARGSP2016074344

PATIENT
  Age: 69 Year
  Sex: Female
  Weight: 80 kg

DRUGS (4)
  1. ACIDO FOLICO                       /00024201/ [Concomitant]
     Active Substance: FOLIC ACID
     Dosage: 5 MG, WEEKLY
  2. ENBREL [Suspect]
     Active Substance: ETANERCEPT
     Indication: RHEUMATOID ARTHRITIS
     Dosage: 50 MG, WEEKLY
     Route: 065
     Dates: start: 20150224
  3. PREDNISONA ALONGA [Concomitant]
     Dosage: 5 MG, DAILY
  4. METOTREXATO                        /00113801/ [Concomitant]
     Active Substance: METHOTREXATE
     Dosage: 15 MG, WEEKLY

REACTIONS (4)
  - Synovial cyst [Recovered/Resolved]
  - Lymphadenopathy [Unknown]
  - Lymph node tuberculosis [Unknown]
  - Neck mass [Unknown]

NARRATIVE: CASE EVENT DATE: 201511
